FAERS Safety Report 21480320 (Version 1)
Quarter: 2022Q4

REPORT INFORMATION
  Report Type: Spontaneous
  Country: IT (occurrence: IT)
  Receive Date: 20221019
  Receipt Date: 20221019
  Transmission Date: 20230113
  Serious: Yes (Disabling, Other)
  Sender: FDA-Public Use
  Company Number: IT-STADA-256823

PATIENT
  Age: 80 Year
  Sex: Male

DRUGS (4)
  1. SORAFENIB [Suspect]
     Active Substance: SORAFENIB
     Indication: Hepatocellular carcinoma
     Dosage: UNK
     Route: 065
  2. REGORAFENIB [Concomitant]
     Active Substance: REGORAFENIB
     Indication: Hepatocellular carcinoma
     Dosage: UNK
     Route: 065
  3. CABOZANTINIB [Concomitant]
     Active Substance: CABOZANTINIB
     Indication: Hepatocellular carcinoma
     Dosage: 40 MILLIGRAM, QD
     Route: 065
  4. CABOZANTINIB [Concomitant]
     Active Substance: CABOZANTINIB
     Dosage: 60 MILLIGRAM, QD
     Route: 065

REACTIONS (1)
  - Drug ineffective [Unknown]
